FAERS Safety Report 23014035 (Version 1)
Quarter: 2023Q4

REPORT INFORMATION
  Report Type: Spontaneous
  Country: CA (occurrence: CA)
  Receive Date: 20231002
  Receipt Date: 20231002
  Transmission Date: 20240110
  Serious: Yes (Other)
  Sender: FDA-Public Use
  Company Number: CA-CELLTRION INC.-2023CA018824

PATIENT

DRUGS (2)
  1. YUFLYMA [Suspect]
     Active Substance: ADALIMUMAB-AATY
     Indication: Hidradenitis
     Dosage: 40 MILLIGRAM, WEEKLY
     Route: 058
     Dates: start: 20230919
  2. METFORMIN [Concomitant]
     Active Substance: METFORMIN HYDROCHLORIDE
     Dosage: UNK

REACTIONS (7)
  - Dementia [Unknown]
  - Unevaluable event [Unknown]
  - Loss of personal independence in daily activities [Unknown]
  - Affect lability [Unknown]
  - Fatigue [Unknown]
  - Asthenia [Unknown]
  - Anxiety [Unknown]
